FAERS Safety Report 11334690 (Version 1)
Quarter: 2015Q3

REPORT INFORMATION
  Report Type: Spontaneous
  Country: US (occurrence: None)
  Receive Date: 20150731
  Receipt Date: 20150731
  Transmission Date: 20151125
  Serious: Yes (Death, Other)
  Sender: FDA-Public Use
  Company Number: CO-ZO-JP-2015-040

PATIENT
  Age: 63 Year
  Sex: Male

DRUGS (1)
  1. EXCEGRAN [Suspect]
     Active Substance: ZONISAMIDE
     Indication: CONVULSION PROPHYLAXIS
     Route: 048

REACTIONS (1)
  - Stevens-Johnson syndrome [None]
